FAERS Safety Report 6151193-X (Version None)
Quarter: 2009Q2

REPORT INFORMATION
  Report Type: 
  Country: None (occurrence: None)
  Receive Date: 20090408
  Receipt Date: 20090408
  Transmission Date: 20091009
  Serious: Yes (Other)
  Sender: FDA-Public Use
  Company Number: None

PATIENT
  Sex: Male
  Weight: 88.4514 kg

DRUGS (1)
  1. PROPAFENONE HCL [Suspect]
     Indication: ARRHYTHMIA
     Dosage: ONE TABLET 2X DAILY PO
     Route: 048
     Dates: start: 20070810, end: 20090407

REACTIONS (1)
  - PRODUCT QUALITY ISSUE [None]
